FAERS Safety Report 8702494 (Version 3)
Quarter: 2012Q4

REPORT INFORMATION
  Report Type: 
  Country: FR (occurrence: FR)
  Receive Date: 20120803
  Receipt Date: 20120914
  Transmission Date: 20130627
  Serious: Yes (Death, Other)
  Sender: FDA-Public Use
  Company Number: FR-ABBOTT-12P-056-0963076-00

PATIENT
  Age: 53 None
  Sex: Female

DRUGS (12)
  1. HUMIRA [Suspect]
     Indication: RHEUMATOID ARTHRITIS
     Route: 058
     Dates: start: 200610, end: 201005
  2. HUMIRA [Suspect]
  3. MABTHERA [Suspect]
     Indication: RHEUMATOID ARTHRITIS
     Route: 042
     Dates: start: 20100505, end: 20100505
  4. MABTHERA [Suspect]
     Route: 042
     Dates: start: 20100525, end: 20100525
  5. MABTHERA [Suspect]
     Dates: start: 201104, end: 201104
  6. ENBREL [Suspect]
     Indication: RHEUMATOID ARTHRITIS
     Route: 058
     Dates: start: 200512, end: 200610
  7. NOVATREX (METHOTREXATE) [Suspect]
     Indication: RHEUMATOID ARTHRITIS
     Route: 048
     Dates: start: 1997
  8. NOVATREX (METHOTREXATE) [Suspect]
     Dates: start: 1999, end: 201108
  9. LEVOTHYROX [Concomitant]
     Indication: AUTOIMMUNE THYROIDITIS
  10. ALDACTONE [Concomitant]
     Indication: HYPERTENSION
  11. VITAMINE D [Concomitant]
     Indication: PRODUCT USED FOR UNKNOWN INDICATION
  12. CALCIUM [Concomitant]
     Indication: PRODUCT USED FOR UNKNOWN INDICATION

REACTIONS (4)
  - Mixed hepatocellular cholangiocarcinoma [Fatal]
  - Metastases to lung [Unknown]
  - Metastases to liver [Unknown]
  - Metastases to bone [Unknown]
